FAERS Safety Report 6173267-X (Version None)
Quarter: 2009Q2

REPORT INFORMATION
  Report Type: 
  Country: None (occurrence: None)
  Receive Date: 20090430
  Receipt Date: 20090427
  Transmission Date: 20091009
  Serious: No
  Sender: FDA-Public Use
  Company Number: US-B.I. PHARMACEUTICALS,INC./RIDGEFIELD-2009-BP-05334BP

PATIENT
  Age: 60 Year
  Sex: Female

DRUGS (3)
  1. MIRAPEX [Suspect]
     Indication: PARKINSON'S DISEASE
     Dosage: 1.5MG
     Route: 048
     Dates: start: 20081101
  2. LEXAPRO [Concomitant]
     Indication: DEPRESSION
  3. B/P MED [Concomitant]
     Indication: BLOOD PRESSURE INCREASED

REACTIONS (1)
  - WHEEZING [None]
